FAERS Safety Report 7213849-7 (Version None)
Quarter: 2011Q1

REPORT INFORMATION
  Report Type: 
  Country: None (occurrence: None)
  Receive Date: 20110106
  Receipt Date: 20101227
  Transmission Date: 20110831
  Serious: Yes (Other)
  Sender: FDA-Public Use
  Company Number: PHHY2010US62159

PATIENT
  Sex: Female

DRUGS (1)
  1. GLEEVEC [Suspect]
     Indication: CHRONIC MYELOID LEUKAEMIA
     Dosage: 400 MG, QD
     Route: 048
     Dates: start: 20090706

REACTIONS (5)
  - RETINAL OPERATION [None]
  - THROMBOSIS [None]
  - MUSCLE SPASMS [None]
  - PAIN [None]
  - RETINAL DETACHMENT [None]
